FAERS Safety Report 6163414-8 (Version None)
Quarter: 2009Q2

REPORT INFORMATION
  Report Type: 
  Country: None (occurrence: None)
  Receive Date: 20090422
  Receipt Date: 20090414
  Transmission Date: 20091009
  Serious: Yes (Other)
  Sender: FDA-Public Use
  Company Number: PHEH2009US03662

PATIENT
  Sex: Male

DRUGS (5)
  1. CLOZAPINE [Suspect]
     Indication: SCHIZOPHRENIA
     Dosage: 700 MG, QD
  2. WELLBUTRIN [Concomitant]
  3. KLONOPIN [Concomitant]
  4. BUSPAR [Concomitant]
  5. ZONEGRAN [Concomitant]

REACTIONS (2)
  - LEUKOCYTOSIS [None]
  - PSYCHIATRIC DECOMPENSATION [None]
